FAERS Safety Report 6230725-7 (Version None)
Quarter: 2009Q2

REPORT INFORMATION
  Report Type: 
  Country: None (occurrence: None)
  Receive Date: 20090611
  Receipt Date: 20090611
  Transmission Date: 20091009
  Serious: Yes (Hospitalization)
  Sender: FDA-Public Use
  Company Number: None

PATIENT
  Sex: Female
  Weight: 50.8029 kg

DRUGS (1)
  1. LANOXIN [Suspect]
     Dosage: 0.25 MG (NOW) 1 EA. DAY BY MOUTH
     Route: 048

REACTIONS (4)
  - DEHYDRATION [None]
  - INFLUENZA [None]
  - MALAISE [None]
  - PRODUCT MEASURED POTENCY ISSUE [None]
